FAERS Safety Report 12173014 (Version 1)
Quarter: 2016Q1

REPORT INFORMATION
  Report Type: Spontaneous
  Country: US (occurrence: US)
  Receive Date: 20160311
  Receipt Date: 20160311
  Transmission Date: 20160526
  Serious: Yes (Other)
  Sender: FDA-Public Use
  Company Number: US-TEVA-642205USA

PATIENT
  Sex: Female

DRUGS (1)
  1. COPAXONE [Suspect]
     Active Substance: GLATIRAMER ACETATE
     Indication: MULTIPLE SCLEROSIS
     Dosage: UNKNOWN FORM STRENGTH

REACTIONS (6)
  - Paralysis [Unknown]
  - Blindness [Unknown]
  - Generalised tonic-clonic seizure [Unknown]
  - Headache [Unknown]
  - Hypoaesthesia [Unknown]
  - Myocardial infarction [Unknown]
